FAERS Safety Report 20459951 (Version 2)
Quarter: 2022Q1

REPORT INFORMATION
  Report Type: Spontaneous
  Country: CA (occurrence: None)
  Receive Date: 20220211
  Receipt Date: 20220215
  Transmission Date: 20220423
  Serious: Yes (Other)
  Sender: FDA-Public Use
  Company Number: CA-ROCHE-3020973

PATIENT
  Sex: Female

DRUGS (1)
  1. GAVRETO [Suspect]
     Active Substance: PRALSETINIB
     Indication: Lung neoplasm malignant
     Route: 048

REACTIONS (4)
  - Pulmonary oedema [Unknown]
  - Metastases to thorax [Unknown]
  - Lung disorder [Unknown]
  - Metastases to abdominal cavity [Unknown]
